FAERS Safety Report 8927939 (Version 1)
Quarter: 2012Q4

REPORT INFORMATION
  Report Type: Spontaneous
  Country: US (occurrence: None)
  Receive Date: 20121126
  Receipt Date: 20121126
  Transmission Date: 20130627
  Serious: No
  Sender: FDA-Public Use
  Company Number: None

PATIENT
  Age: 57 Year
  Sex: Female
  Weight: 97.98 kg

DRUGS (1)
  1. ZOCOR [Suspect]
     Dosage: UNKNOWN , UNKNOWN, Oral

REACTIONS (1)
  - Headache [None]
